FAERS Safety Report 24025748 (Version 1)
Quarter: 2024Q2

REPORT INFORMATION
  Report Type: Spontaneous
  Country: IN (occurrence: IN)
  Receive Date: 20240628
  Receipt Date: 20240628
  Transmission Date: 20240716
  Serious: No
  Sender: FDA-Public Use
  Company Number: IN-ROCHE-3348078

PATIENT
  Age: 50 Year
  Sex: Female

DRUGS (3)
  1. PHESGO [Suspect]
     Active Substance: HYALURONIDASE-ZZXF\PERTUZUMAB\TRASTUZUMAB
     Indication: Ovarian cancer
     Route: 058
     Dates: start: 20230413
  2. PERJETA [Suspect]
     Active Substance: PERTUZUMAB
     Indication: Ovarian cancer
     Route: 042
     Dates: start: 20230508
  3. PERJETA [Suspect]
     Active Substance: PERTUZUMAB
     Route: 042

REACTIONS (3)
  - Off label use [Unknown]
  - Drug intolerance [Unknown]
  - Pleural effusion [Unknown]
